FAERS Safety Report 6401767-3 (Version None)
Quarter: 2009Q4

REPORT INFORMATION
  Report Type: 
  Country: None (occurrence: None)
  Receive Date: 20091015
  Receipt Date: 20091001
  Transmission Date: 20100525
  Serious: Yes (Life-Threatening, Hospitalization, Other)
  Sender: FDA-Public Use
  Company Number: JP-PFIZER INC-2009282643

PATIENT
  Age: 73 Year

DRUGS (17)
  1. ATARAX [Suspect]
     Dosage: 50 MG, DAILY
     Route: 048
     Dates: start: 20080801
  2. DIAZEPAM [Suspect]
     Indication: INSOMNIA
     Dosage: 2 MG, DAILY
     Route: 048
     Dates: start: 20090601, end: 20090801
  3. LAMICTAL [Suspect]
     Indication: BIPOLAR DISORDER
     Dosage: 25 MG, DAILY
     Route: 048
     Dates: start: 20090629, end: 20090726
  4. LAMICTAL [Suspect]
     Dosage: 50 MG, DAILY
     Dates: start: 20090727, end: 20090809
  5. ACETAMINOPHEN [Suspect]
     Indication: HEADACHE
     Route: 048
  6. CAFFEINE [Suspect]
     Indication: HEADACHE
  7. DEPROMEL [Suspect]
     Indication: ANTIDEPRESSANT THERAPY
     Dosage: 150 MG, DAILY
     Route: 048
  8. TETRAMIDE [Suspect]
     Indication: ANTIDEPRESSANT THERAPY
     Dosage: 60 MG, DAILY
     Route: 048
     Dates: start: 20080801
  9. ZYPREXA [Suspect]
     Indication: ANTIDEPRESSANT THERAPY
     Dosage: 20 MG, DAILY
     Route: 048
     Dates: start: 20090301
  10. MYSLEE [Suspect]
     Indication: INSOMNIA
     Dosage: 10 MG, DAILY
     Route: 048
  11. LENDORMIN [Suspect]
     Indication: INSOMNIA
     Route: 048
  12. FLUNITRAZEPAM [Suspect]
     Indication: INSOMNIA
     Dosage: 2 MG, DAILY
  13. LEXOTAN [Suspect]
     Indication: ANXIETY
     Dosage: 4 MG, DAILY
  14. POLYCARBOPHIL CALCIUM [Suspect]
     Indication: ABDOMINAL DISTENSION
     Dosage: 1500 MG, DAILY
     Route: 048
  15. EVAMYL [Suspect]
     Indication: INSOMNIA
     Dosage: UNK
     Route: 048
     Dates: start: 20080801
  16. HIRNAMIN [Suspect]
  17. SILECE [Suspect]

REACTIONS (1)
  - STEVENS-JOHNSON SYNDROME [None]
